FAERS Safety Report 5503084-2 (Version None)
Quarter: 2007Q4

REPORT INFORMATION
  Report Type: 
  Country: None (occurrence: None)
  Receive Date: 20071031
  Receipt Date: 20071027
  Transmission Date: 20080405
  Serious: Yes (Hospitalization, Other)
  Sender: FDA-Public Use
  Company Number: PT-WYE-G00541007

PATIENT
  Age: 42 Year
  Sex: Male

DRUGS (5)
  1. RAPAMUNE [Suspect]
     Indication: RENAL TRANSPLANT
     Dosage: UNKNOWN
     Dates: start: 20070101
  2. PREDNISOLONE [Concomitant]
     Indication: RENAL TRANSPLANT
     Dosage: UNKNOWN
     Dates: start: 20060101
  3. CYCLOSPORINE [Concomitant]
     Indication: RENAL TRANSPLANT
     Dosage: UNKNOWN
     Dates: start: 20060101, end: 20070101
  4. MYCOPHENOLATE MOFETIL [Concomitant]
     Indication: RENAL TRANSPLANT
     Dosage: 2 G/DAY
     Dates: start: 20060101, end: 20070101
  5. MYCOPHENOLATE MOFETIL [Concomitant]
     Dosage: 500 MG/DAY
     Dates: start: 20070101

REACTIONS (3)
  - CONDITION AGGRAVATED [None]
  - KAPOSI'S SARCOMA [None]
  - PNEUMONIA LEGIONELLA [None]
